FAERS Safety Report 7766832-7 (Version None)
Quarter: 2011Q3

REPORT INFORMATION
  Report Type: 
  Country: None (occurrence: None)
  Receive Date: 20110922
  Receipt Date: 20101230
  Transmission Date: 20111222
  Serious: No
  Sender: FDA-Public Use
  Company Number: US-ASTRAZENECA-2010SE61478

PATIENT
  Age: 13515 Day
  Sex: Male
  Weight: 102.1 kg

DRUGS (2)
  1. SEROQUEL [Suspect]
     Indication: BIPOLAR DISORDER
     Route: 048
     Dates: start: 20101229
  2. KLONOPIN [Concomitant]
     Route: 048

REACTIONS (6)
  - ABASIA [None]
  - FATIGUE [None]
  - DYSARTHRIA [None]
  - FEELING ABNORMAL [None]
  - LETHARGY [None]
  - FEELING DRUNK [None]
